FAERS Safety Report 7487121-4 (Version None)
Quarter: 2011Q2

REPORT INFORMATION
  Report Type: 
  Country: None (occurrence: None)
  Receive Date: 20110510
  Receipt Date: 20110426
  Transmission Date: 20111010
  Serious: Yes (Other)
  Sender: FDA-Public Use
  Company Number: 031929

PATIENT
  Sex: Male
  Weight: 83.9 kg

DRUGS (5)
  1. CIMZIA [Suspect]
     Indication: CROHN'S DISEASE
     Dosage: (400 MG ONE FIRST, TWO WEEK AFTER THAT AND MONTHLY SUBCUTANEOUS), (400 MG X1/MONTH SUBCUTANEOUS)
     Route: 058
     Dates: start: 20110201, end: 20110301
  2. CIMZIA [Suspect]
     Indication: SPINAL OSTEOARTHRITIS
     Dosage: (400 MG ONE FIRST, TWO WEEK AFTER THAT AND MONTHLY SUBCUTANEOUS), (400 MG X1/MONTH SUBCUTANEOUS)
     Route: 058
     Dates: start: 20110201, end: 20110301
  3. CIMZIA [Suspect]
     Indication: CROHN'S DISEASE
     Dosage: (400 MG ONE FIRST, TWO WEEK AFTER THAT AND MONTHLY SUBCUTANEOUS), (400 MG X1/MONTH SUBCUTANEOUS)
     Route: 058
     Dates: start: 20100925, end: 20110223
  4. CIMZIA [Suspect]
     Indication: SPINAL OSTEOARTHRITIS
     Dosage: (400 MG ONE FIRST, TWO WEEK AFTER THAT AND MONTHLY SUBCUTANEOUS), (400 MG X1/MONTH SUBCUTANEOUS)
     Route: 058
     Dates: start: 20100925, end: 20110223
  5. PREDNISONE [Concomitant]

REACTIONS (4)
  - PHOTOPHOBIA [None]
  - MANIA [None]
  - MIGRAINE [None]
  - OPTIC NEURITIS [None]
